FAERS Safety Report 9326125 (Version 1)
Quarter: 2013Q2

REPORT INFORMATION
  Report Type: Spontaneous
  Country: US (occurrence: None)
  Receive Date: 20130603
  Receipt Date: 20130603
  Transmission Date: 20140414
  Serious: Yes (Other)
  Sender: FDA-Public Use
  Company Number: None

PATIENT
  Age: 37 Year
  Sex: Female
  Weight: 63.5 kg

DRUGS (1)
  1. NEULASTA 6MG AMGEN [Suspect]
     Dosage: 1 SHOT AFTER CHEMO
     Route: 030
     Dates: start: 20130520, end: 20130520

REACTIONS (1)
  - Muscle spasms [None]
